FAERS Safety Report 16789554 (Version 1)
Quarter: 2019Q3

REPORT INFORMATION
  Report Type: Spontaneous
  Country: US (occurrence: US)
  Receive Date: 20190910
  Receipt Date: 20190910
  Transmission Date: 20191005
  Serious: No
  Sender: FDA-Public Use
  Company Number: US-JNJFOC-20190908990

PATIENT
  Age: 75 Year
  Sex: Female
  Weight: 65.38 kg

DRUGS (1)
  1. WOMENS ROGAINE UNSCENTED [Suspect]
     Active Substance: MINOXIDIL
     Indication: ALOPECIA
     Dosage: DON^T KNOW ONCE DAILY
     Route: 061

REACTIONS (1)
  - Expired product administered [Unknown]
